FAERS Safety Report 4944529-6 (Version None)
Quarter: 2006Q1

REPORT INFORMATION
  Report Type: 
  Country: None (occurrence: None)
  Receive Date: 20060315
  Receipt Date: 20051216
  Transmission Date: 20060701
  Serious: Yes (Hospitalization)
  Sender: FDA-Public Use
  Company Number: PHBS2005JP18673

PATIENT
  Age: 25 Year
  Sex: Female

DRUGS (7)
  1. TEGRETOL [Suspect]
     Indication: CONVULSION
     Dosage: 400 MG/DAY
     Route: 048
     Dates: start: 20051104, end: 20051106
  2. TEGRETOL [Suspect]
     Dosage: 600 MG/DAY
     Route: 048
     Dates: start: 20001107, end: 20051113
  3. TEGRETOL [Suspect]
     Dosage: 500 MG/DAY
     Route: 048
     Dates: start: 20051114, end: 20051125
  4. ROCEPHIN [Suspect]
     Dosage: 1 G/DAY
     Dates: start: 20051121, end: 20051125
  5. MAGLAX [Concomitant]
     Dosage: 750 MG/DAY
     Route: 048
     Dates: start: 20051115
  6. LOXONIN [Concomitant]
     Dosage: 60 MG/DAY
     Route: 048
     Dates: start: 20051115
  7. NAUZELIN [Concomitant]
     Dosage: 60 MG/DAY
     Route: 048
     Dates: start: 20051118

REACTIONS (13)
  - ALANINE AMINOTRANSFERASE INCREASED [None]
  - DIZZINESS [None]
  - DRUG HYPERSENSITIVITY [None]
  - GAMMA-GLUTAMYLTRANSFERASE INCREASED [None]
  - HISTIOCYTOSIS HAEMATOPHAGIC [None]
  - LIVER DISORDER [None]
  - LYMPHADENITIS [None]
  - LYMPHADENOPATHY [None]
  - LYMPHOCYTE COUNT DECREASED [None]
  - PYREXIA [None]
  - RASH [None]
  - SOMNOLENCE [None]
  - WHITE BLOOD CELL COUNT DECREASED [None]
